FAERS Safety Report 4523540-3 (Version None)
Quarter: 2004Q4

REPORT INFORMATION
  Report Type: 
  Country: None (occurrence: None)
  Receive Date: 20041210
  Receipt Date: 20041207
  Transmission Date: 20050328
  Serious: Yes (Hospitalization)
  Sender: FDA-Public Use
  Company Number: US-JNJFOC-20040904209

PATIENT
  Age: 80 Year
  Sex: Female

DRUGS (2)
  1. DURAGESIC [Suspect]
     Route: 062
     Dates: start: 19980101
  2. DURAGESIC [Suspect]
     Route: 062
     Dates: start: 19980101

REACTIONS (5)
  - CONFUSIONAL STATE [None]
  - CYSTITIS [None]
  - DECREASED IMMUNE RESPONSIVENESS [None]
  - LETHARGY [None]
  - SEPSIS [None]
